FAERS Safety Report 6018281-X (Version None)
Quarter: 2008Q4

REPORT INFORMATION
  Report Type: 
  Country: None (occurrence: None)
  Receive Date: 20081223
  Receipt Date: 20081220
  Transmission Date: 20090506
  Serious: Yes (Death)
  Sender: FDA-Public Use
  Company Number: PHHY2008IL32683

PATIENT
  Age: 37 Year
  Sex: Female

DRUGS (3)
  1. VOLTAREN [Suspect]
     Indication: PAIN
     Route: 065
  2. METHADONE HCL [Concomitant]
  3. DIPYRONE [Concomitant]

REACTIONS (3)
  - HAEMORRHAGE [None]
  - HYPOTENSION [None]
  - TACHYCARDIA [None]
